FAERS Safety Report 8339876 (Version 10)
Quarter: 2020Q3

REPORT INFORMATION
  Report Type: Report from Study
  Country: US (occurrence: US)
  Receive Date: 20120117
  Receipt Date: 20120531
  Transmission Date: 20201105
  Serious: Yes (Other)
  Sender: FDA-Public Use
  Company Number: US-JNJFOC-20120105626

PATIENT
  Age: 54 Year
  Sex: Male
  Weight: 86.64 kg

DRUGS (65)
  1. TETRACYCLINE [Concomitant]
     Active Substance: TETRACYCLINE
     Indication: SCLERODERMA
     Route: 065
  2. PROVIGIL [Concomitant]
     Active Substance: MODAFINIL
     Route: 065
     Dates: start: 20020605
  3. PROVIGIL [Concomitant]
     Active Substance: MODAFINIL
     Indication: SCLERODERMA
     Route: 065
     Dates: start: 20020605
  4. LUNESTA [Concomitant]
     Active Substance: ESZOPICLONE
     Indication: SLEEP DISORDER
     Route: 065
     Dates: start: 20040306
  5. LIDOCAINE HYDROCHLORIDE. [Concomitant]
     Active Substance: LIDOCAINE HYDROCHLORIDE
     Indication: PAIN
     Route: 065
     Dates: start: 20090620
  6. BACTRIM [Concomitant]
     Active Substance: SULFAMETHOXAZOLE\TRIMETHOPRIM
     Indication: ANTIBIOTIC THERAPY
     Route: 065
  7. NYSTATIN. [Concomitant]
     Active Substance: NYSTATIN
     Indication: RAYNAUD^S PHENOMENON
     Route: 065
  8. CISAPRIDE [Suspect]
     Active Substance: CISAPRIDE
     Indication: GASTROOESOPHAGEAL REFLUX DISEASE
     Route: 048
     Dates: end: 20120215
  9. TETRACYCLINE [Concomitant]
     Active Substance: TETRACYCLINE
     Indication: OVERGROWTH BACTERIAL
     Route: 065
  10. ZANTAC [Concomitant]
     Active Substance: RANITIDINE HYDROCHLORIDE
     Indication: GASTROOESOPHAGEAL REFLUX DISEASE
     Route: 065
  11. NASONEX [Concomitant]
     Active Substance: MOMETASONE FUROATE
     Route: 065
     Dates: start: 20010206
  12. LUNESTA [Concomitant]
     Active Substance: ESZOPICLONE
     Route: 065
  13. AVODART [Concomitant]
     Active Substance: DUTASTERIDE
     Route: 065
  14. CYTOXAN [Concomitant]
     Active Substance: CYCLOPHOSPHAMIDE
     Indication: SCLERODERMA
     Route: 065
  15. BENZONATATE. [Concomitant]
     Active Substance: BENZONATATE
     Indication: ANTITUSSIVE THERAPY
     Route: 065
  16. AVODART [Concomitant]
     Active Substance: DUTASTERIDE
     Indication: ASTHMA
     Route: 065
     Dates: start: 20020420
  17. PRILOCAINE HYDROCHLORIDE. [Concomitant]
     Active Substance: PRILOCAINE HYDROCHLORIDE
     Indication: ULCER
     Route: 065
  18. LIPITOR [Concomitant]
     Active Substance: ATORVASTATIN CALCIUM
     Indication: BLOOD CHOLESTEROL
     Route: 065
  19. DELSYM [Concomitant]
     Active Substance: DEXTROMETHORPHAN
     Indication: ANTITUSSIVE THERAPY
     Route: 065
  20. CEPHALEXIN. [Concomitant]
     Active Substance: CEPHALEXIN
     Indication: ANTIBIOTIC THERAPY
     Route: 065
  21. PREVACID [Concomitant]
     Active Substance: LANSOPRAZOLE
     Indication: GASTROOESOPHAGEAL REFLUX DISEASE
     Route: 065
     Dates: start: 20080303
  22. PREVACID [Concomitant]
     Active Substance: LANSOPRAZOLE
     Route: 065
  23. SOMA [Concomitant]
     Active Substance: CARISOPRODOL
     Indication: SLEEP DISORDER
     Route: 065
     Dates: start: 20040306
  24. ABILIFY [Concomitant]
     Active Substance: ARIPIPRAZOLE
     Indication: DEPRESSION
     Route: 065
  25. AMLODIPINE [Concomitant]
     Active Substance: AMLODIPINE BESYLATE
     Indication: CARDIOVASCULAR DISORDER
     Route: 065
     Dates: start: 20040306
  26. AVODART [Concomitant]
     Active Substance: DUTASTERIDE
     Route: 065
     Dates: start: 20020420
  27. LORAZEPAM. [Concomitant]
     Active Substance: LORAZEPAM
     Indication: MUSCLE RELAXANT THERAPY
     Route: 065
     Dates: start: 20020626
  28. LORAZEPAM. [Concomitant]
     Active Substance: LORAZEPAM
     Route: 065
  29. CIPROFLOXACIN. [Concomitant]
     Active Substance: CIPROFLOXACIN
     Indication: SCLERODERMA
     Route: 065
  30. ONDANSETRON [Concomitant]
     Active Substance: ONDANSETRON
     Indication: NAUSEA
     Route: 065
  31. DOMPERIDONE [Concomitant]
     Active Substance: DOMPERIDONE
     Indication: PAIN
     Route: 065
     Dates: start: 20020420
  32. CELLCEPT [Concomitant]
     Active Substance: MYCOPHENOLATE MOFETIL\MYCOPHENOLATE MOFETIL HYDROCHLORIDE
     Indication: SCLERODERMA
     Route: 065
     Dates: start: 20021016
  33. ZANTAC [Concomitant]
     Active Substance: RANITIDINE HYDROCHLORIDE
     Route: 065
     Dates: start: 20010205
  34. AMLODIPINE [Concomitant]
     Active Substance: AMLODIPINE BESYLATE
     Indication: BLOOD PRESSURE MEASUREMENT
     Route: 065
  35. ALL OTHER THERAPEUTIC DRUGS [Concomitant]
     Active Substance: UNSPECIFIED INGREDIENT
     Indication: RAYNAUD^S PHENOMENON
     Route: 061
  36. LISINOPRIL. [Concomitant]
     Active Substance: LISINOPRIL
     Indication: HYPERTENSION
     Route: 065
  37. CISAPRIDE [Suspect]
     Active Substance: CISAPRIDE
     Indication: GASTROINTESTINAL MOTILITY DISORDER
     Route: 048
     Dates: start: 20090801
  38. CISAPRIDE [Suspect]
     Active Substance: CISAPRIDE
     Route: 048
     Dates: end: 20120215
  39. LYRICA [Concomitant]
     Active Substance: PREGABALIN
     Route: 065
     Dates: start: 20021016
  40. EFFEXOR [Concomitant]
     Active Substance: VENLAFAXINE HYDROCHLORIDE
     Indication: DEPRESSION
     Route: 065
     Dates: start: 19930206
  41. PROVIGIL [Concomitant]
     Active Substance: MODAFINIL
     Indication: ANTIDEPRESSANT THERAPY
     Route: 065
  42. AMLODIPINE [Concomitant]
     Active Substance: AMLODIPINE BESYLATE
     Route: 065
  43. LORAZEPAM. [Concomitant]
     Active Substance: LORAZEPAM
     Indication: SCLERODERMA
     Route: 065
     Dates: start: 20020626
  44. MIRALAX [Concomitant]
     Active Substance: POLYETHYLENE GLYCOL 3350
     Indication: CONSTIPATION
     Route: 065
     Dates: start: 19990506
  45. CISAPRIDE [Suspect]
     Active Substance: CISAPRIDE
     Route: 048
     Dates: start: 20090801
  46. CEPHALEXIN. [Concomitant]
     Active Substance: CEPHALEXIN
     Indication: SCLERODERMA
     Route: 065
  47. LYRICA [Concomitant]
     Active Substance: PREGABALIN
     Indication: NEUROPATHY PERIPHERAL
     Route: 065
  48. LYRICA [Concomitant]
     Active Substance: PREGABALIN
     Route: 065
     Dates: start: 20021016
  49. ASPIRIN. [Concomitant]
     Active Substance: ASPIRIN
     Indication: CARDIAC DISORDER
     Route: 065
     Dates: start: 20081016
  50. NASONEX [Concomitant]
     Active Substance: MOMETASONE FUROATE
     Indication: INFLAMMATION
     Route: 065
  51. PROVIGIL [Concomitant]
     Active Substance: MODAFINIL
     Route: 065
  52. AMLODIPINE [Concomitant]
     Active Substance: AMLODIPINE BESYLATE
     Route: 065
     Dates: start: 20040306
  53. LORAZEPAM. [Concomitant]
     Active Substance: LORAZEPAM
     Route: 065
  54. CYMBALTA [Concomitant]
     Active Substance: DULOXETINE HYDROCHLORIDE
     Indication: ANTIDEPRESSANT THERAPY
     Route: 065
  55. CIPROFLOXACIN. [Concomitant]
     Active Substance: CIPROFLOXACIN
     Indication: ANTIBIOTIC THERAPY
     Route: 065
  56. CISAPRIDE [Suspect]
     Active Substance: CISAPRIDE
     Route: 048
  57. CISAPRIDE [Suspect]
     Active Substance: CISAPRIDE
     Route: 048
  58. LYRICA [Concomitant]
     Active Substance: PREGABALIN
     Indication: PAIN
     Route: 065
  59. NASONEX [Concomitant]
     Active Substance: MOMETASONE FUROATE
     Indication: HYPERSENSITIVITY
     Route: 065
     Dates: start: 20010206
  60. NASONEX [Concomitant]
     Active Substance: MOMETASONE FUROATE
     Route: 065
  61. ABILIFY [Concomitant]
     Active Substance: ARIPIPRAZOLE
     Route: 065
     Dates: start: 20040306
  62. AVODART [Concomitant]
     Active Substance: DUTASTERIDE
     Indication: PROSTATIC DISORDER
     Route: 065
  63. LUXIQ [Concomitant]
     Active Substance: BETAMETHASONE VALERATE
     Indication: PAIN
     Route: 065
     Dates: start: 20090626
  64. BACTRIM [Concomitant]
     Active Substance: SULFAMETHOXAZOLE\TRIMETHOPRIM
     Indication: SCLERODERMA
     Route: 065
  65. OXYBUTYNIN. [Concomitant]
     Active Substance: OXYBUTYNIN CHLORIDE
     Indication: PROSTATOMEGALY
     Route: 065

REACTIONS (4)
  - Electrocardiogram QT prolonged [Recovered/Resolved]
  - Urinary tract infection [None]
  - Small intestinal obstruction [None]
  - Gastrointestinal hypomotility [None]

NARRATIVE: CASE EVENT DATE: 20120109
